FAERS Safety Report 24218009 (Version 1)
Quarter: 2024Q3

REPORT INFORMATION
  Report Type: Report from Study
  Country: JP (occurrence: JP)
  Receive Date: 20240816
  Receipt Date: 20240816
  Transmission Date: 20241017
  Serious: Yes (Death)
  Sender: PFIZER
  Company Number: JP-PFIZER INC-PV202400106472

PATIENT
  Age: 67 Year
  Sex: Male

DRUGS (4)
  1. LEUCOVORIN CALCIUM [Suspect]
     Active Substance: LEUCOVORIN CALCIUM
     Indication: Pancreatic carcinoma
     Dosage: 200 MG/M2, CYCLIC, AFTER FOUR TREATMENT CYCLES
  2. IRINOTECAN HYDROCHLORIDE [Suspect]
     Active Substance: IRINOTECAN HYDROCHLORIDE
     Indication: Pancreatic carcinoma
     Dosage: 150 MG/M2, CYCLIC, AFTER FOUR TREATMENT CYCLES
  3. OXALIPLATIN [Suspect]
     Active Substance: OXALIPLATIN
     Indication: Pancreatic carcinoma
     Dosage: 85 MG/M2, CYCLIC, AFTER FOUR TREATMENT CYCLES
  4. FLUOROURACIL [Suspect]
     Active Substance: FLUOROURACIL
     Indication: Pancreatic carcinoma
     Dosage: 2400 MG/M2, CYCLIC, AFTER FOUR TREATMENT CYCLES

REACTIONS (2)
  - Interstitial lung disease [Fatal]
  - Pneumonia bacterial [Fatal]
